FAERS Safety Report 4741829-X (Version None)
Quarter: 2005Q3

REPORT INFORMATION
  Report Type: 
  Country: None (occurrence: None)
  Receive Date: 20050801
  Receipt Date: 20050619
  Transmission Date: 20060218
  Serious: No
  Sender: FDA-Public Use
  Company Number: 2005PV000100

PATIENT
  Sex: Male

DRUGS (5)
  1. BYETTA [Suspect]
     Indication: DIABETES MELLITUS
     Dosage: 5 UG;BID;SC
     Route: 058
     Dates: start: 20050615
  2. NPH INSULIN [Concomitant]
  3. AVANDIA [Concomitant]
  4. GLUCOTROL [Concomitant]
  5. PRECOSE [Concomitant]

REACTIONS (3)
  - ABDOMINAL DISTENSION [None]
  - BLOOD GLUCOSE DECREASED [None]
  - NAUSEA [None]
